FAERS Safety Report 26120208 (Version 2)
Quarter: 2025Q4

REPORT INFORMATION
  Report Type: Spontaneous
  Country: EU (occurrence: EU)
  Receive Date: 20251204
  Receipt Date: 20251217
  Transmission Date: 20260117
  Serious: Yes (Other)
  Sender: AUROBINDO
  Company Number: EU-STADA-01495467

PATIENT
  Age: 22 Year
  Sex: Female

DRUGS (8)
  1. MONTELUKAST [Suspect]
     Active Substance: MONTELUKAST
     Indication: Asthma
     Dosage: 10 MILLIGRAM
     Route: 065
  2. BILASTINE [Concomitant]
     Active Substance: BILASTINE
     Indication: Chronic rhinosinusitis without nasal polyps
     Dosage: 20 MILLIGRAM
     Route: 065
  3. METHYLPREDNISOLONE [Concomitant]
     Active Substance: METHYLPREDNISOLONE
     Indication: Eosinophilic granulomatosis with polyangiitis
     Dosage: 1 MILLIGRAM/KILOGRAM (BOLUSES)
     Route: 065
     Dates: start: 202101, end: 202101
  4. PREDNISONE [Concomitant]
     Active Substance: PREDNISONE
     Indication: Eosinophilic granulomatosis with polyangiitis
     Dosage: 1 MILLIGRAM/KILOGRAM
     Route: 061
  5. PREDNISONE [Concomitant]
     Active Substance: PREDNISONE
     Dosage: 30 MILLIGRAM, ONCE A DAY
     Route: 061
     Dates: start: 2021
  6. PREDNISOLONE [Concomitant]
     Active Substance: PREDNISOLONE
     Indication: Eosinophilic granulomatosis with polyangiitis
     Dosage: 30 MILLIGRAM, ONCE A DAY (DECREASED PROGRESSIVELY OVER 6 MONTHS)
     Route: 065
     Dates: start: 202101
  7. FLUTICASONE FUROATE\VILANTEROL TRIFENATATE [Concomitant]
     Active Substance: FLUTICASONE FUROATE\VILANTEROL TRIFENATATE
     Indication: Asthma
     Dosage: UNK (184/22 ?G)
     Route: 065
  8. MEPOLIZUMAB [Concomitant]
     Active Substance: MEPOLIZUMAB
     Indication: Product used for unknown indication
     Dosage: 300 MILLIGRAM (4 WK)
     Route: 065

REACTIONS (7)
  - Paranasal sinus inflammation [Unknown]
  - Sinus polyp [Unknown]
  - Myopericarditis [Recovering/Resolving]
  - Mononeuropathy [Recovered/Resolved]
  - Pleural effusion [Recovered/Resolved]
  - Eosinophilic granulomatosis with polyangiitis [Recovered/Resolved]
  - Drug ineffective [Unknown]

NARRATIVE: CASE EVENT DATE: 20210101
